FAERS Safety Report 9505891 (Version 3)
Quarter: 2015Q3

REPORT INFORMATION
  Report Type: Spontaneous
  Country: US (occurrence: None)
  Receive Date: 20130228
  Receipt Date: 20150925
  Transmission Date: 20151125
  Serious: Yes (Hospitalization, Other)
  Sender: FDA-Public Use
  Company Number: ADR-2013-00316

PATIENT
  Age: 46 Year
  Sex: Female

DRUGS (2)
  1. MORPHINE INTRATHECAL [Suspect]
     Active Substance: MORPHINE
  2. BACLOFEN INTRATHECAL [Suspect]
     Active Substance: BACLOFEN
     Indication: MUSCLE SPASTICITY

REACTIONS (10)
  - No therapeutic response [None]
  - Pain [None]
  - Device alarm issue [None]
  - Drug withdrawal syndrome [None]
  - Medical device site infection [None]
  - Medical device site erosion [None]
  - Abdominal rigidity [None]
  - Somnolence [None]
  - Blindness unilateral [None]
  - Malaise [None]
